FAERS Safety Report 10033105 (Version 1)
Quarter: 2014Q1

REPORT INFORMATION
  Report Type: Report from Study
  Country: US (occurrence: US)
  Receive Date: 20140324
  Receipt Date: 20140324
  Transmission Date: 20141002
  Serious: Yes (Other)
  Sender: FDA-Public Use
  Company Number: US-ABBVIE-14P-163-1212635-00

PATIENT
  Age: 67 Year
  Sex: Female

DRUGS (25)
  1. HUMIRA [Suspect]
     Indication: RHEUMATOID ARTHRITIS
     Dates: start: 2005, end: 20140214
  2. CELEBREX [Concomitant]
     Indication: OSTEOARTHRITIS
  3. DEXILANT [Concomitant]
     Indication: GASTROOESOPHAGEAL REFLUX DISEASE
  4. DULOXETINE [Concomitant]
     Indication: BACK PAIN
  5. ESTRADIOL [Concomitant]
     Indication: HORMONE REPLACEMENT THERAPY
     Dosage: VAGINAL RING, REPLACED EVERY 90 DAYS
  6. ESTRADIOL [Concomitant]
     Indication: HORMONE REPLACEMENT THERAPY
     Dosage: .5MG - 1MG DAILY
  7. FOLIC ACID [Concomitant]
     Indication: PRODUCT USED FOR UNKNOWN INDICATION
  8. GABAPENTIN [Concomitant]
     Indication: BACK PAIN
  9. XYZAL [Concomitant]
     Indication: HYPERSENSITIVITY
  10. MECLIZINE [Concomitant]
     Indication: NAUSEA
  11. MECLIZINE [Concomitant]
     Indication: VOMITING
  12. METFORMIN [Concomitant]
     Indication: BLOOD CHOLESTEROL INCREASED
     Dosage: 1/2 TAB DAILY
  13. CRESTOR [Concomitant]
     Indication: BLOOD CHOLESTEROL INCREASED
  14. VESICARE [Concomitant]
     Indication: BLADDER SPASM
  15. LISINOPRIL [Concomitant]
     Indication: HYPERTENSION
  16. SINGULAIR [Concomitant]
     Indication: HYPERSENSITIVITY
  17. NASONEX [Concomitant]
     Indication: PRODUCT USED FOR UNKNOWN INDICATION
     Dosage: 1 SPRAY, EACH NOSTRIL, TWICE DAILY
  18. NORCO [Concomitant]
     Indication: PAIN
     Dosage: 7.5/325MG AS NEEDED
  19. HYDROXYZINE HCL [Concomitant]
     Indication: PRURITUS
     Dosage: WITH THE NORCO
  20. MULTIVITAMINS [Concomitant]
     Indication: PRODUCT USED FOR UNKNOWN INDICATION
     Dosage: DAILY
  21. LYSINE [Concomitant]
     Indication: PRODUCT USED FOR UNKNOWN INDICATION
  22. VITAMIN D [Concomitant]
     Indication: PRODUCT USED FOR UNKNOWN INDICATION
  23. POTASSIUM CITRATE [Concomitant]
     Indication: PRODUCT USED FOR UNKNOWN INDICATION
  24. VITAMIN B-12 [Concomitant]
     Indication: PRODUCT USED FOR UNKNOWN INDICATION
  25. VITAMIN B6 [Concomitant]
     Indication: PRODUCT USED FOR UNKNOWN INDICATION

REACTIONS (18)
  - Goitre [Recovered/Resolved]
  - Optic nerve disorder [Unknown]
  - Rotator cuff syndrome [Recovered/Resolved]
  - Rotator cuff syndrome [Recovered/Resolved]
  - Spinal column stenosis [Not Recovered/Not Resolved]
  - Nuclear magnetic resonance imaging brain abnormal [Unknown]
  - Nuclear magnetic resonance imaging brain abnormal [Unknown]
  - Intervertebral disc protrusion [Not Recovered/Not Resolved]
  - Thyroid neoplasm [Recovered/Resolved]
  - Demyelination [Unknown]
  - Vertigo [Unknown]
  - Photophobia [Unknown]
  - Headache [Unknown]
  - Visual impairment [Not Recovered/Not Resolved]
  - Muscular weakness [Unknown]
  - Tremor [Not Recovered/Not Resolved]
  - Dry eye [Unknown]
  - Sinusitis [Recovered/Resolved]
